FAERS Safety Report 25478792 (Version 1)
Quarter: 2025Q2

REPORT INFORMATION
  Report Type: Spontaneous
  Country: GB (occurrence: GB)
  Receive Date: 20250625
  Receipt Date: 20250625
  Transmission Date: 20250716
  Serious: Yes (Other)
  Sender: STEMLINE THERAPEUTICS
  Company Number: GB-STEMLINE THERAPEUTICS, INC-2025-STML-GB002113

PATIENT

DRUGS (1)
  1. ELACESTRANT [Suspect]
     Active Substance: ELACESTRANT
     Indication: Breast cancer metastatic
     Route: 065
     Dates: start: 202408

REACTIONS (3)
  - Ejection fraction decreased [Unknown]
  - Pleural effusion [Unknown]
  - Carbohydrate antigen 15-3 increased [Unknown]

NARRATIVE: CASE EVENT DATE: 20240701
